FAERS Safety Report 9385779 (Version 3)
Quarter: 2013Q3

REPORT INFORMATION
  Report Type: Spontaneous
  Country: JP (occurrence: JP)
  Receive Date: 20130705
  Receipt Date: 20130816
  Transmission Date: 20140515
  Serious: Yes (Hospitalization)
  Sender: FDA-Public Use
  Company Number: JP-B.I. PHARMACEUTICALS,INC./RIDGEFIELD-2013-BI-13960NB

PATIENT
  Age: 60 Year
  Sex: Female
  Weight: 43.3 kg

DRUGS (12)
  1. TRAZENTA [Suspect]
     Indication: TYPE 2 DIABETES MELLITUS
     Dosage: 5 MG
     Route: 048
     Dates: start: 20130427, end: 20130506
  2. GASMOTIN [Suspect]
     Indication: CONSTIPATION
     Route: 065
     Dates: start: 20130419, end: 20130515
  3. PREDONINE [Suspect]
     Indication: HENOCH-SCHONLEIN PURPURA
     Dosage: 20 MG
     Route: 065
     Dates: start: 20130510
  4. PREDONINE [Suspect]
     Dosage: 15 MG
     Route: 065
     Dates: start: 20130520
  5. PREDONINE [Suspect]
     Dosage: 12.5 MG
     Route: 065
     Dates: start: 20130601
  6. ADALAT L [Concomitant]
     Indication: HYPERTENSION
     Dosage: 10 MG
     Route: 048
     Dates: start: 20130111
  7. SIGMART [Concomitant]
     Indication: ANGINA PECTORIS
     Dosage: 15 MG
     Route: 048
     Dates: start: 20120830
  8. BAYASPIRIN [Concomitant]
     Indication: ANGINA PECTORIS
     Dosage: 100 MG
     Route: 048
  9. ANPLAG [Concomitant]
     Indication: ANGINA PECTORIS
     Dosage: 300 MG
     Route: 048
  10. ROCALTROL [Concomitant]
     Indication: OSTEODYSTROPHY
     Dosage: 0.25 MCG
     Route: 048
  11. TAKEPRON [Concomitant]
     Indication: GASTRITIS EROSIVE
     Dosage: 15 MG
     Route: 048
  12. LEVEMIR [Concomitant]
     Indication: TYPE 2 DIABETES MELLITUS
     Dosage: DAILY DOSE: 4 DF
     Route: 065
     Dates: end: 201305

REACTIONS (3)
  - Henoch-Schonlein purpura [Not Recovered/Not Resolved]
  - Hypertension [Not Recovered/Not Resolved]
  - Blood glucose increased [Not Recovered/Not Resolved]
